FAERS Safety Report 5144682-8 (Version None)
Quarter: 2006Q4

REPORT INFORMATION
  Report Type: 
  Country: None (occurrence: None)
  Receive Date: 20061031
  Receipt Date: 20061018
  Transmission Date: 20070319
  Serious: Yes (Hospitalization, Other)
  Sender: FDA-Public Use
  Company Number: 2006128769

PATIENT
  Age: 23 Year
  Sex: Female

DRUGS (5)
  1. GEODON [Suspect]
     Indication: BRIEF PSYCHOTIC DISORDER, WITH POSTPARTUM ONSET
     Dates: start: 20060928, end: 20061002
  2. GEODON [Suspect]
     Indication: DEPRESSION
     Dates: start: 20060928, end: 20061002
  3. GEODON [Suspect]
     Indication: SCHIZOPHRENIA
     Dates: start: 20060928, end: 20061002
  4. CYMBALTA [Concomitant]
  5. CELEXA (CITALOBRAM HYDROBROMIDE) [Concomitant]

REACTIONS (11)
  - DIARRHOEA [None]
  - EMOTIONAL DISORDER [None]
  - FAECES DISCOLOURED [None]
  - IMPAIRED WORK ABILITY [None]
  - INFECTION [None]
  - INTENTIONAL DRUG MISUSE [None]
  - NAUSEA [None]
  - PANIC ATTACK [None]
  - RASH [None]
  - SUICIDE ATTEMPT [None]
  - TREMOR [None]
